APPROVED DRUG PRODUCT: CARBOPLATIN
Active Ingredient: CARBOPLATIN
Strength: 50MG/5ML (10MG/ML)
Dosage Form/Route: INJECTABLE;INTRAVENOUS
Application: A077998 | Product #001
Applicant: PHARMOBEDIENT CONSULTING LLC
Approved: Apr 24, 2007 | RLD: No | RS: No | Type: DISCN